FAERS Safety Report 20697607 (Version 1)
Quarter: 2022Q2

REPORT INFORMATION
  Report Type: Spontaneous
  Country: CN (occurrence: CN)
  Receive Date: 20220411
  Receipt Date: 20220411
  Transmission Date: 20220721
  Serious: Yes (Other)
  Sender: FDA-Public Use
  Company Number: CN-ALLERGAN-2211672US

PATIENT
  Sex: Male

DRUGS (2)
  1. MEMANTINE [Suspect]
     Active Substance: MEMANTINE
     Indication: Dementia Alzheimer^s type
     Dosage: 10 MG, QD
     Route: 048
     Dates: start: 20220302, end: 20220307
  2. TRILEPTAL [Suspect]
     Active Substance: OXCARBAZEPINE
     Indication: Symptomatic treatment
     Dosage: 300 MG, BID
     Route: 048
     Dates: start: 20220303, end: 20220307

REACTIONS (1)
  - Unresponsive to stimuli [Unknown]

NARRATIVE: CASE EVENT DATE: 20220305
